FAERS Safety Report 8291033-6 (Version None)
Quarter: 2012Q2

REPORT INFORMATION
  Report Type: 
  Country: None (occurrence: None)
  Receive Date: 20120413
  Receipt Date: 20120411
  Transmission Date: 20120825
  Serious: Yes (Hospitalization, Other)
  Sender: FDA-Public Use
  Company Number: ADR-2011-11151

PATIENT
  Sex: Female

DRUGS (1)
  1. LIORESAL [Suspect]
     Indication: MUSCLE SPASTICITY
     Dosage: 190.11 MCG, DAILY, INTR
     Route: 037

REACTIONS (9)
  - BLOOD PRESSURE INCREASED [None]
  - TREATMENT NONCOMPLIANCE [None]
  - CONVULSION [None]
  - MUSCLE SPASMS [None]
  - THERAPY CESSATION [None]
  - AGITATION [None]
  - BODY TEMPERATURE INCREASED [None]
  - PAIN [None]
  - APNOEA [None]
